FAERS Safety Report 8953189 (Version 1)
Quarter: 2012Q4

REPORT INFORMATION
  Report Type: 
  Country: GB (occurrence: GB)
  Receive Date: 20121206
  Receipt Date: 20121206
  Transmission Date: 20130627
  Serious: Yes (Hospitalization)
  Sender: FDA-Public Use
  Company Number: GB-ACCORD-015467

PATIENT
  Age: 54 Year

DRUGS (13)
  1. PARACETAMOL [Concomitant]
     Dosage: As necessary
     Route: 048
     Dates: start: 20121029
  2. CIPROFLOXACIN [Suspect]
     Indication: DRUG USE FOR UNKNOWN INDICATION
     Route: 048
     Dates: start: 20121027, end: 20121028
  3. OMEPRAZOLE [Concomitant]
     Route: 040
     Dates: start: 20121030
  4. NITROFURANTOIN [Suspect]
     Indication: DRUG USE FOR UNKNOWN INDICATION
     Route: 048
     Dates: start: 20121028, end: 20121029
  5. CHLORPHENAMINE [Concomitant]
     Dosage: As necessary
     Route: 048
     Dates: start: 20121029
  6. TOPIRAMATE [Concomitant]
     Indication: EPILEPSY
     Route: 048
  7. CYCLIZINE [Concomitant]
     Dates: start: 20121028, end: 20121030
  8. COLESTYRAMINE [Concomitant]
     Dates: start: 20121031
  9. LEVETIRACETAM [Suspect]
     Indication: EPILEPSY
     Route: 048
  10. DOMPERIDONE [Concomitant]
     Route: 048
     Dates: start: 20121030
  11. METOCLOPRAMIDE [Concomitant]
     Dosage: Stat dose after rash noticed
     Dates: start: 20121030, end: 20121030
  12. TRIMETHOPRIM [Suspect]
     Indication: DRUG USE FOR UNKNOWN INDICATION
     Route: 048
     Dates: start: 20121029, end: 20121030
  13. LOPERAMIDE [Concomitant]
     Route: 048
     Dates: start: 20121027, end: 20121027

REACTIONS (1)
  - Drug reaction with eosinophilia and systemic symptoms [Unknown]
